FAERS Safety Report 7246977-0 (Version None)
Quarter: 2011Q1

REPORT INFORMATION
  Report Type: 
  Country: None (occurrence: None)
  Receive Date: 20110127
  Receipt Date: 20101213
  Transmission Date: 20110831
  Serious: Yes (Death, Other)
  Sender: FDA-Public Use
  Company Number: US-BAXTER-2009BH006543

PATIENT
  Age: 70 Year
  Sex: Male
  Weight: 103 kg

DRUGS (69)
  1. HEPARIN SODIUM INJECTION [Suspect]
     Route: 040
     Dates: start: 20071120
  2. HEPARIN SODIUM INJECTION [Suspect]
     Route: 010
     Dates: start: 20061031, end: 20061103
  3. HEPARIN SODIUM INJECTION [Suspect]
     Route: 010
     Dates: start: 20061031, end: 20061103
  4. HEPARIN SODIUM INJECTION [Suspect]
     Route: 010
     Dates: start: 20070129
  5. HEPARIN SODIUM INJECTION [Suspect]
     Route: 010
     Dates: start: 20070129
  6. HEPARIN SODIUM INJECTION [Suspect]
     Route: 010
     Dates: start: 20070129
  7. HEPARIN SODIUM INJECTION [Suspect]
     Route: 010
     Dates: start: 20061103
  8. HEPARIN SODIUM INJECTION [Suspect]
     Route: 010
     Dates: start: 20070807
  9. DARBEPOETIN ALFA [Concomitant]
     Indication: DIALYSIS
     Route: 065
  10. COREG [Concomitant]
     Indication: PRODUCT USED FOR UNKNOWN INDICATION
     Route: 048
     Dates: start: 20070816
  11. HEPARIN SODIUM INJECTION [Suspect]
     Route: 010
     Dates: start: 20061106
  12. HEPARIN SODIUM INJECTION [Suspect]
     Route: 010
     Dates: start: 20070129
  13. HEPARIN SODIUM INJECTION [Suspect]
     Route: 010
     Dates: start: 20070129
  14. HEPARIN SODIUM INJECTION [Suspect]
     Route: 065
     Dates: start: 20070206, end: 20070206
  15. HEPARIN SODIUM INJECTION [Suspect]
     Route: 065
     Dates: start: 20070501, end: 20070501
  16. HEPARIN SODIUM INJECTION [Suspect]
     Route: 065
     Dates: start: 20070501, end: 20070501
  17. HEPARIN SODIUM INJECTION [Suspect]
     Route: 010
     Dates: start: 20070802, end: 20070807
  18. IRON SUCROSE [Concomitant]
     Indication: PRODUCT USED FOR UNKNOWN INDICATION
     Route: 042
  19. LASIX [Concomitant]
     Indication: PRODUCT USED FOR UNKNOWN INDICATION
     Route: 048
     Dates: start: 20061107
  20. LANTUS [Concomitant]
     Indication: PRODUCT USED FOR UNKNOWN INDICATION
     Route: 058
     Dates: start: 20070816
  21. HEPARIN SODIUM INJECTION [Suspect]
     Route: 010
     Dates: start: 20070129
  22. HEPARIN SODIUM INJECTION [Suspect]
     Route: 010
     Dates: start: 20061103
  23. HEPARIN SODIUM INJECTION [Suspect]
     Route: 042
     Dates: start: 20061106
  24. HEPARIN SODIUM INJECTION [Suspect]
     Route: 065
     Dates: start: 20070206, end: 20070206
  25. HEPARIN SODIUM INJECTION [Suspect]
     Route: 010
     Dates: start: 20070802, end: 20070807
  26. HEPARIN SODIUM INJECTION [Suspect]
     Route: 010
     Dates: start: 20070807
  27. MULTI-VITAMINS [Concomitant]
     Indication: PRODUCT USED FOR UNKNOWN INDICATION
     Route: 048
     Dates: start: 20070129
  28. NITROGLYCERIN COMP. [Concomitant]
     Indication: PRODUCT USED FOR UNKNOWN INDICATION
     Route: 060
     Dates: start: 20061108
  29. NOVOLOG [Concomitant]
     Indication: PRODUCT USED FOR UNKNOWN INDICATION
     Route: 058
     Dates: start: 20070411
  30. HEPARIN SODIUM INJECTION [Suspect]
     Indication: THROMBOSIS PROPHYLAXIS
     Route: 010
     Dates: start: 20061001, end: 20071121
  31. HEPARIN SODIUM INJECTION [Suspect]
     Indication: ARTERIOVENOUS FISTULA OPERATION
     Route: 010
     Dates: start: 20061001, end: 20071121
  32. HEPARIN SODIUM INJECTION [Suspect]
     Route: 010
     Dates: start: 20061031, end: 20061103
  33. HEPARIN SODIUM INJECTION [Suspect]
     Route: 010
     Dates: start: 20061103
  34. HEPARIN SODIUM INJECTION [Suspect]
     Route: 065
     Dates: start: 20070501, end: 20070501
  35. HEPARIN SODIUM INJECTION [Suspect]
     Route: 010
     Dates: start: 20070502, end: 20070502
  36. HEPARIN SODIUM INJECTION [Suspect]
     Route: 040
     Dates: start: 20071120
  37. HEPARIN SODIUM INJECTION [Suspect]
     Route: 010
     Dates: start: 20061103
  38. HEPARIN SODIUM INJECTION [Suspect]
     Route: 010
     Dates: start: 20061103
  39. HEPARIN SODIUM INJECTION [Suspect]
     Route: 042
     Dates: start: 20061106
  40. HEPARIN SODIUM INJECTION [Suspect]
     Route: 065
     Dates: start: 20070206, end: 20070206
  41. HEPARIN SODIUM INJECTION [Suspect]
     Route: 010
     Dates: start: 20070502, end: 20070502
  42. HEPARIN SODIUM INJECTION [Suspect]
     Route: 010
     Dates: start: 20070807
  43. MIDODRINE HYDROCHLORIDE [Concomitant]
     Indication: PRODUCT USED FOR UNKNOWN INDICATION
     Route: 048
     Dates: start: 20070820
  44. HEPARIN SODIUM INJECTION [Suspect]
     Route: 010
     Dates: start: 20061031, end: 20061103
  45. HEPARIN SODIUM INJECTION [Suspect]
     Route: 010
     Dates: start: 20061031, end: 20061103
  46. HEPARIN SODIUM INJECTION [Suspect]
     Route: 010
     Dates: start: 20061031, end: 20061103
  47. HEPARIN SODIUM INJECTION [Suspect]
     Route: 065
     Dates: start: 20070206, end: 20070206
  48. HEPARIN SODIUM INJECTION [Suspect]
     Route: 010
     Dates: start: 20070802, end: 20070807
  49. HEPARIN SODIUM INJECTION [Suspect]
     Route: 010
     Dates: start: 20070807
  50. HEPARIN SODIUM INJECTION [Suspect]
     Route: 010
     Dates: start: 20070807
  51. SYNTHROID [Concomitant]
     Indication: PRODUCT USED FOR UNKNOWN INDICATION
     Route: 048
     Dates: start: 20061106
  52. RENAGEL [Concomitant]
     Indication: PRODUCT USED FOR UNKNOWN INDICATION
     Route: 048
     Dates: start: 20070816
  53. HEPARIN SODIUM INJECTION [Suspect]
     Route: 010
     Dates: start: 20061106
  54. HEPARIN SODIUM INJECTION [Suspect]
     Route: 010
     Dates: start: 20061106
  55. HEPARIN SODIUM INJECTION [Suspect]
     Route: 065
     Dates: start: 20070206, end: 20070206
  56. HEPARIN SODIUM INJECTION [Suspect]
     Route: 010
     Dates: start: 20070802, end: 20070807
  57. HEPARIN SODIUM INJECTION [Suspect]
     Route: 010
     Dates: start: 20070802, end: 20070807
  58. HEPARIN SODIUM INJECTION [Suspect]
     Route: 010
     Dates: start: 20070807
  59. PLAVIX [Concomitant]
     Indication: PRODUCT USED FOR UNKNOWN INDICATION
     Route: 048
     Dates: start: 20071005
  60. HEPARIN SODIUM INJECTION [Suspect]
     Route: 010
     Dates: start: 20061001, end: 20071121
  61. HEPARIN SODIUM INJECTION [Suspect]
     Route: 040
     Dates: start: 20071120
  62. HEPARIN SODIUM INJECTION [Suspect]
     Route: 010
     Dates: start: 20061103
  63. HEPARIN SODIUM INJECTION [Suspect]
     Route: 065
     Dates: start: 20070206, end: 20070206
  64. HEPARIN SODIUM INJECTION [Suspect]
     Route: 042
     Dates: start: 20061106
  65. HEPARIN SODIUM INJECTION [Suspect]
     Route: 010
     Dates: start: 20070502, end: 20070502
  66. HEPARIN SODIUM INJECTION [Suspect]
     Route: 010
     Dates: start: 20070802, end: 20070807
  67. QUININE SULFATE [Concomitant]
     Indication: MUSCLE SPASMS
     Route: 048
  68. ASPIRIN [Concomitant]
     Indication: PRODUCT USED FOR UNKNOWN INDICATION
     Route: 048
  69. NIASPAN [Concomitant]
     Indication: PRODUCT USED FOR UNKNOWN INDICATION
     Route: 048
     Dates: start: 20070608

REACTIONS (18)
  - HYPOTENSION [None]
  - TYPE 2 DIABETES MELLITUS [None]
  - HYPOVOLAEMIA [None]
  - JOINT SWELLING [None]
  - RESTLESSNESS [None]
  - PRURITUS [None]
  - HYPERTENSION [None]
  - SEPTIC SHOCK [None]
  - DEVICE RELATED INFECTION [None]
  - DEVICE RELATED SEPSIS [None]
  - VOMITING [None]
  - CARDIOMEGALY [None]
  - DYSPNOEA [None]
  - NAUSEA [None]
  - PULMONARY OEDEMA [None]
  - DIARRHOEA [None]
  - CORONARY ARTERY DISEASE [None]
  - ABDOMINAL PAIN [None]
